FAERS Safety Report 9800148 (Version 1)
Quarter: 2014Q1

REPORT INFORMATION
  Report Type: Spontaneous
  Country: BE (occurrence: BE)
  Receive Date: 20140106
  Receipt Date: 20140106
  Transmission Date: 20141002
  Serious: Yes (Other)
  Sender: FDA-Public Use
  Company Number: BE-TEVA-453890ISR

PATIENT
  Sex: 0

DRUGS (2)
  1. PROVIGIL [Suspect]
  2. DIANE [Interacting]

REACTIONS (2)
  - Haemorrhage [Unknown]
  - Drug interaction [Unknown]
